FAERS Safety Report 15690664 (Version 1)
Quarter: 2018Q4

REPORT INFORMATION
  Report Type: Spontaneous
  Country: NL (occurrence: NL)
  Receive Date: 20181205
  Receipt Date: 20181205
  Transmission Date: 20190205
  Serious: Yes (Other)
  Sender: FDA-Public Use
  Company Number: NL-TEVA-2018-NL-982185

PATIENT
  Age: 56 Year
  Sex: Female
  Weight: 100 kg

DRUGS (5)
  1. HYDROCHLOORTIAZIDE [Suspect]
     Active Substance: HYDROCHLOROTHIAZIDE
     Indication: HYPERTENSION
     Dosage: 25 MILLIGRAM DAILY; 1X PER DAY 25MG
     Route: 065
     Dates: start: 201709
  2. SIMVASTATINE 40 MG [Concomitant]
  3. LOSARTAN 100 MG [Concomitant]
     Active Substance: LOSARTAN
  4. HYDROCHLOORTIAZIDE [Suspect]
     Active Substance: HYDROCHLOROTHIAZIDE
     Indication: OEDEMA
  5. AMLOPIDINE 5 MG [Concomitant]

REACTIONS (1)
  - Basal cell carcinoma [Recovered/Resolved]

NARRATIVE: CASE EVENT DATE: 201803
